FAERS Safety Report 6839785-3 (Version None)
Quarter: 2010Q3

REPORT INFORMATION
  Report Type: 
  Country: None (occurrence: None)
  Receive Date: 20100714
  Receipt Date: 20100707
  Transmission Date: 20110219
  Serious: Yes (Hospitalization)
  Sender: FDA-Public Use
  Company Number: US-GILEAD-2010-0030307

PATIENT
  Sex: Female
  Weight: 54.5 kg

DRUGS (9)
  1. LETAIRIS [Suspect]
     Indication: PULMONARY ARTERIAL HYPERTENSION
     Route: 048
     Dates: start: 20100609
  2. LASIX [Concomitant]
  3. SULAR [Concomitant]
  4. BENAZEPRIL HYDROCHLORIDE [Concomitant]
  5. FEMARA [Concomitant]
  6. ALBUTEROL [Concomitant]
  7. ACTOS [Concomitant]
  8. KLOR-CON [Concomitant]
  9. LUTEIN [Concomitant]

REACTIONS (1)
  - OXYGEN SATURATION DECREASED [None]
